FAERS Safety Report 4947543-X (Version None)
Quarter: 2006Q1

REPORT INFORMATION
  Report Type: 
  Country: None (occurrence: None)
  Receive Date: 20060313
  Receipt Date: 20060302
  Transmission Date: 20060701
  Serious: Yes (Other)
  Sender: FDA-Public Use
  Company Number: 2006CL000650

PATIENT
  Age: 51 Year
  Sex: Male
  Weight: 104.7809 kg

DRUGS (7)
  1. SYMLIN [Suspect]
     Indication: DIABETES MELLITUS INSULIN-DEPENDENT
     Dosage: 30 MCG ID SC ; 60 MCG X1 SC ; 60 MCG TID SC ; 45 MCG TID SC
     Route: 058
     Dates: start: 20060125, end: 20060125
  2. SYMLIN [Suspect]
     Indication: DIABETES MELLITUS INSULIN-DEPENDENT
     Dosage: 30 MCG ID SC ; 60 MCG X1 SC ; 60 MCG TID SC ; 45 MCG TID SC
     Route: 058
     Dates: start: 20060125, end: 20060125
  3. SYMLIN [Suspect]
     Indication: DIABETES MELLITUS INSULIN-DEPENDENT
     Dosage: 30 MCG ID SC ; 60 MCG X1 SC ; 60 MCG TID SC ; 45 MCG TID SC
     Route: 058
     Dates: start: 20060126, end: 20060224
  4. SYMLIN [Suspect]
     Indication: DIABETES MELLITUS INSULIN-DEPENDENT
     Dosage: 30 MCG ID SC ; 60 MCG X1 SC ; 60 MCG TID SC ; 45 MCG TID SC
     Route: 058
     Dates: start: 20060224
  5. HUMULIN [Concomitant]
  6. ROSIGLITAZONE [Concomitant]
  7. HUMULIN [Concomitant]

REACTIONS (5)
  - ANOREXIA [None]
  - ASTHENIA [None]
  - FALL [None]
  - HYPOGLYCAEMIA [None]
  - LOSS OF CONSCIOUSNESS [None]
